FAERS Safety Report 9221629 (Version 1)
Quarter: 2013Q1

REPORT INFORMATION
  Report Type: Spontaneous
  Country: US (occurrence: None)
  Receive Date: 20120831
  Receipt Date: 20120831
  Transmission Date: 20140127
  Serious: No
  Sender: FDA-Public Use
  Company Number: 163-22393-12062389

PATIENT
  Age: 69 Year
  Sex: Male
  Weight: 75.75 kg

DRUGS (9)
  1. ISTODAX [Suspect]
     Indication: MYCOSIS FUNGOIDES
     Dates: start: 201110
  2. IMODIUM(LOPERAMIDE)(HYDROCHLORIDE) [Concomitant]
  3. PREVACID(LANSOPRAZOLE) [Concomitant]
  4. SIMVASTATIN(SIMVASTATIN) [Concomitant]
  5. ZETIA(EZETIMIBE) [Concomitant]
  6. ALBUTEROL NEBULIZER(SALBUTAMOL)(INHALANT) [Concomitant]
  7. AMBIEN(ZOLOPIDEM TARTRATE) [Concomitant]
  8. MICRO K (POTASSIUM CHLORIDE) [Concomitant]
  9. ODANSETRON(ODANSETRON) [Concomitant]

REACTIONS (5)
  - Nausea [None]
  - Vomiting [None]
  - Diarrhoea [None]
  - Dry skin [None]
  - Dry mouth [None]
